FAERS Safety Report 4835982-7 (Version None)
Quarter: 2005Q4

REPORT INFORMATION
  Report Type: 
  Country: None (occurrence: None)
  Receive Date: 20051123
  Receipt Date: 20051110
  Transmission Date: 20060501
  Serious: Yes (Death)
  Sender: FDA-Public Use
  Company Number: DE-AMGEN-UK157403

PATIENT
  Age: 63 Year
  Sex: Female

DRUGS (2)
  1. KINERET [Suspect]
     Indication: POLYARTHRITIS
     Route: 058
     Dates: start: 20021201, end: 20040913
  2. PREDNISOLONE [Concomitant]
     Route: 065

REACTIONS (5)
  - HEPATIC CYST [None]
  - METASTASES TO LUNG [None]
  - METASTATIC MALIGNANT MELANOMA [None]
  - RENAL CYST [None]
  - TRANSAMINASES INCREASED [None]
